FAERS Safety Report 17240336 (Version 1)
Quarter: 2020Q1

REPORT INFORMATION
  Report Type: Spontaneous
  Country: US (occurrence: US)
  Receive Date: 20200107
  Receipt Date: 20200107
  Transmission Date: 20200409
  Serious: No
  Sender: FDA-Public Use
  Company Number: US-LUPIN PHARMACEUTICALS INC.-2019-03602

PATIENT
  Age: 1 Year
  Sex: Female

DRUGS (1)
  1. CEFDINIR FOR ORAL SUSPENSION USP 250 MG/5 ML [Suspect]
     Active Substance: CEFDINIR
     Indication: EAR INFECTION
     Dosage: 1.5 MILLILITER, QD
     Route: 048
     Dates: start: 20190522

REACTIONS (3)
  - Joint swelling [Not Recovered/Not Resolved]
  - Rash [Not Recovered/Not Resolved]
  - Joint warmth [Not Recovered/Not Resolved]

NARRATIVE: CASE EVENT DATE: 20190528
